FAERS Safety Report 9144841 (Version 1)
Quarter: 2013Q1

REPORT INFORMATION
  Report Type: Report from Study
  Country: SE (occurrence: SE)
  Receive Date: 20130307
  Receipt Date: 20130307
  Transmission Date: 20140127
  Serious: Yes (Other)
  Sender: FDA-Public Use
  Company Number: SE-AMGEN-SWECT2012076639

PATIENT
  Age: 48 Year
  Sex: Female

DRUGS (3)
  1. ETANERCEPT [Suspect]
     Indication: RHEUMATOID ARTHRITIS
     Dosage: 50 MG, QWK
     Route: 058
     Dates: start: 20080122, end: 20120815
  2. METHOTREXATE [Concomitant]
     Dosage: UNK
     Dates: start: 20070206
  3. CELEBRA [Concomitant]
     Dosage: 100 MG, UNKNOWN FREQUENCY
     Dates: start: 20081218

REACTIONS (1)
  - Infection susceptibility increased [Recovering/Resolving]
